FAERS Safety Report 24107810 (Version 1)
Quarter: 2024Q3

REPORT INFORMATION
  Report Type: Report from Study
  Country: US (occurrence: None)
  Receive Date: 20240718
  Receipt Date: 20240718
  Transmission Date: 20241017
  Serious: Yes (Other)
  Sender: ASTRAZENECA
  Company Number: 2020SE54831

PATIENT
  Sex: Female

DRUGS (6)
  1. LYNPARZA [Suspect]
     Active Substance: OLAPARIB
     Indication: Ovarian cancer
     Route: 048
     Dates: start: 20200407
  2. LYNPARZA [Suspect]
     Active Substance: OLAPARIB
     Indication: Hepatic neoplasm
     Route: 048
     Dates: start: 20200407
  3. LYNPARZA [Suspect]
     Active Substance: OLAPARIB
     Indication: Ovarian cancer
     Dosage: 150 MG IN THE MORNING AND 300 MG IN THE EVENING
     Route: 048
     Dates: start: 20200515
  4. LYNPARZA [Suspect]
     Active Substance: OLAPARIB
     Indication: Hepatic neoplasm
     Dosage: 150 MG IN THE MORNING AND 300 MG IN THE EVENING
     Route: 048
     Dates: start: 20200515
  5. LYNPARZA [Suspect]
     Active Substance: OLAPARIB
     Indication: Ovarian cancer
     Dosage: 150 MG IN THE MORNING AND 300 MG IN THE EVENING
     Route: 048
     Dates: start: 20200527
  6. LYNPARZA [Suspect]
     Active Substance: OLAPARIB
     Indication: Hepatic neoplasm
     Dosage: 150 MG IN THE MORNING AND 300 MG IN THE EVENING
     Route: 048
     Dates: start: 20200527

REACTIONS (9)
  - Neuropathy peripheral [Not Recovered/Not Resolved]
  - Oral mucosal blistering [Recovering/Resolving]
  - Nausea [Not Recovered/Not Resolved]
  - Vomiting [Recovered/Resolved]
  - Fatigue [Not Recovered/Not Resolved]
  - Nasal dryness [Unknown]
  - Somnolence [Recovering/Resolving]
  - Product use issue [Unknown]
  - Product dose omission issue [Unknown]
